FAERS Safety Report 17707425 (Version 1)
Quarter: 2020Q2

REPORT INFORMATION
  Report Type: Spontaneous
  Country: RU (occurrence: RU)
  Receive Date: 20200424
  Receipt Date: 20200424
  Transmission Date: 20200714
  Serious: Yes (Hospitalization)
  Sender: FDA-Public Use
  Company Number: RU-ASTRAZENECA-2020SE52789

PATIENT
  Age: 36 Year
  Sex: Female

DRUGS (5)
  1. DIMEDROL [Concomitant]
     Active Substance: DIPHENHYDRAMINE
     Indication: SUICIDE ATTEMPT
     Dosage: 3 TABLETS FOR 1 TIME
     Route: 048
     Dates: start: 20191208, end: 20191208
  2. NIFEDIPINE. [Concomitant]
     Active Substance: NIFEDIPINE
     Indication: SUICIDE ATTEMPT
     Dosage: 3 TABLETS FOR 1 TIME
     Route: 048
     Dates: start: 20191208, end: 20191208
  3. PULMICORT TURBUHALER [Suspect]
     Active Substance: BUDESONIDE
     Indication: SUICIDE ATTEMPT
     Dosage: 4 ML FOR 1 TIME
     Route: 055
     Dates: start: 20191208, end: 20191208
  4. AMOXICILLIN. [Concomitant]
     Active Substance: AMOXICILLIN
     Indication: SUICIDE ATTEMPT
     Dosage: 20 TABLETS FOR ONE TIME
     Route: 048
     Dates: start: 20191208, end: 20191208
  5. NUROFEN [Concomitant]
     Active Substance: IBUPROFEN
     Indication: SUICIDE ATTEMPT
     Dosage: 3 TABLETS FOR 1 TIME
     Route: 048
     Dates: start: 20191208, end: 20191208

REACTIONS (3)
  - Nausea [Unknown]
  - Asthenia [Unknown]
  - Dizziness [Unknown]

NARRATIVE: CASE EVENT DATE: 20191208
